APPROVED DRUG PRODUCT: EDEX
Active Ingredient: ALPROSTADIL
Strength: 0.02MG/VIAL
Dosage Form/Route: INJECTABLE;INJECTION
Application: N020649 | Product #003 | TE Code: AP
Applicant: ENDO OPERATIONS LTD
Approved: Jun 12, 1997 | RLD: Yes | RS: No | Type: RX